FAERS Safety Report 25246820 (Version 4)
Quarter: 2025Q2

REPORT INFORMATION
  Report Type: Spontaneous
  Country: RU (occurrence: RU)
  Receive Date: 20250428
  Receipt Date: 20250620
  Transmission Date: 20250717
  Serious: Yes (Other)
  Sender: JOHNSON AND JOHNSON
  Company Number: RU-JNJFOC-20250431745

PATIENT
  Age: 10 Year
  Sex: Female

DRUGS (2)
  1. BALVERSA [Suspect]
     Active Substance: ERDAFITINIB
     Indication: Astrocytoma
     Route: 048
     Dates: start: 20241007, end: 20250420
  2. BALVERSA [Suspect]
     Active Substance: ERDAFITINIB
     Indication: Glioneuronal tumour

REACTIONS (6)
  - Epiphysiolysis [Unknown]
  - Blood alkaline phosphatase increased [Unknown]
  - Scoliosis [Unknown]
  - Off label use [Unknown]
  - Off label use [Unknown]
  - Anhidrosis [Unknown]

NARRATIVE: CASE EVENT DATE: 20250101
